FAERS Safety Report 10101112 (Version 1)
Quarter: 2014Q2

REPORT INFORMATION
  Report Type: Spontaneous
  Country: US (occurrence: US)
  Receive Date: 20140424
  Receipt Date: 20140424
  Transmission Date: 20141212
  Serious: Yes (Hospitalization)
  Sender: FDA-Public Use
  Company Number: US-AMGEN-USASP2014028420

PATIENT
  Age: 80 Year
  Sex: Female

DRUGS (3)
  1. PROLIA [Suspect]
     Indication: OSTEOPOROSIS POSTMENOPAUSAL
     Dosage: UNK
     Route: 065
     Dates: start: 201402
  2. VITAMIN D3 [Concomitant]
  3. MULTIVITAMIN                       /00097801/ [Concomitant]
     Dosage: UNK UNK, QD

REACTIONS (6)
  - Spinal fracture [Unknown]
  - Mobility decreased [Unknown]
  - Alopecia [Unknown]
  - Hair texture abnormal [Unknown]
  - Pain [Unknown]
  - Stress [Unknown]
